FAERS Safety Report 8405156-1 (Version None)
Quarter: 2012Q2

REPORT INFORMATION
  Report Type: 
  Country: None (occurrence: None)
  Receive Date: 20120602
  Receipt Date: 20120522
  Transmission Date: 20120825
  Serious: Yes (Hospitalization, Other)
  Sender: FDA-Public Use
  Company Number: FR-TEVA-330503ISR

PATIENT
  Sex: Female

DRUGS (8)
  1. ATHYMIL [Concomitant]
  2. SOLU-MEDROL [Concomitant]
     Dosage: 1 GRAM;
     Dates: start: 20111001, end: 20111101
  3. CLONAZEPAM [Concomitant]
     Dates: end: 20120401
  4. SOLU-MEDROL [Concomitant]
     Indication: MULTIPLE SCLEROSIS RELAPSE
     Dosage: 1 GRAM;
     Dates: start: 20111101, end: 20120101
  5. COPAXONE [Suspect]
     Indication: MULTIPLE SCLEROSIS
     Dates: start: 20080101
  6. XANAX [Concomitant]
  7. ATARAX [Concomitant]
  8. SOLU-MEDROL [Concomitant]
     Dosage: 1 GRAM;
     Dates: start: 20120314

REACTIONS (3)
  - PSYCHIATRIC DECOMPENSATION [None]
  - MULTIPLE SCLEROSIS RELAPSE [None]
  - VENTRICULAR EXTRASYSTOLES [None]
